FAERS Safety Report 16403790 (Version 5)
Quarter: 2022Q2

REPORT INFORMATION
  Report Type: Report from Study
  Country: CN (occurrence: None)
  Receive Date: 20190607
  Receipt Date: 20220616
  Transmission Date: 20220721
  Serious: Yes (Death)
  Sender: FDA-Public Use
  Company Number: CN-ROCHE-2331633

PATIENT
  Age: 73 Year
  Sex: Male
  Weight: 65 kg

DRUGS (23)
  1. ATEZOLIZUMAB [Suspect]
     Active Substance: ATEZOLIZUMAB
     Indication: Non-small cell lung cancer
     Dosage: DATE OF MOST RECENT DOSE OF ATEZOLIZUMAB PRIOR TO SAE ONSET: 06/MAR/2019
     Route: 041
     Dates: start: 20181115
  2. GEMCITABINE [Suspect]
     Active Substance: GEMCITABINE
     Indication: Non-small cell lung cancer
     Dosage: DATE OF MOST RECENT DOSE (1721.9 MG) OF GEMCITABINE PRIOR TO SAE ONSET: 30/JAN/2019?GEMCITABINE WILL
     Route: 042
     Dates: start: 20181115
  3. CISPLATIN [Suspect]
     Active Substance: CISPLATIN
     Indication: Non-small cell lung cancer
     Dosage: DATE OF MOST RECENT DOSE OF CISPLATIN (103.3 MG) PRIOR TO SAE ONSET: 23/JAN/2019?CISPLATIN WILL BE A
     Route: 042
     Dates: start: 20181115
  4. ACETYLCYSTEINE [Concomitant]
     Active Substance: ACETYLCYSTEINE
     Indication: Cough
     Dosage: SOLUTION FOR INHALATION
     Dates: start: 20190416, end: 20190507
  5. BUDESONIDE [Concomitant]
     Active Substance: BUDESONIDE
     Indication: Cough
     Dosage: SUSPENSION FOR INHALATION
     Dates: start: 20190416, end: 20190507
  6. VITAMIN C [Concomitant]
     Active Substance: ASCORBIC ACID
     Dates: start: 20190422, end: 20190507
  7. DEXAMETHASONE SODIUM PHOSPHATE [Concomitant]
     Active Substance: DEXAMETHASONE SODIUM PHOSPHATE
     Route: 042
     Dates: start: 20190430, end: 20190503
  8. DEXAMETHASONE SODIUM PHOSPHATE [Concomitant]
     Active Substance: DEXAMETHASONE SODIUM PHOSPHATE
     Route: 042
     Dates: start: 20190531, end: 20190531
  9. MINOCYCLINE HYDROCHLORIDE [Concomitant]
     Active Substance: MINOCYCLINE HYDROCHLORIDE
     Dates: start: 20190426, end: 20190506
  10. ETIMICIN SULFATE [Concomitant]
     Active Substance: ETIMICIN SULFATE
     Indication: Infection
     Dates: start: 20190426, end: 20190506
  11. COMPOUND METHOXYPHENAMINE [Concomitant]
     Indication: Cough
     Dates: start: 20190426, end: 20190507
  12. COMPOUND METHOXYPHENAMINE [Concomitant]
     Indication: Productive cough
  13. MAMMAL LIVER [Concomitant]
     Active Substance: MAMMAL LIVER
     Dates: start: 20190503, end: 20190507
  14. CEFOPERAZONE SODIUM\SULBACTAM SODIUM [Concomitant]
     Active Substance: CEFOPERAZONE SODIUM\SULBACTAM SODIUM
     Indication: Infection
     Dates: start: 20190429, end: 20190507
  15. INVERT SUGAR AND ELECTROLYTES [Concomitant]
     Dosage: REPLENISH ELECTROLYTE
     Dates: start: 20190430, end: 20190507
  16. FLUCONAZOLE [Concomitant]
     Active Substance: FLUCONAZOLE
     Dates: start: 20190430, end: 20190506
  17. SODIUM CHLORIDE [Concomitant]
     Active Substance: SODIUM CHLORIDE
     Dates: start: 20190430, end: 20190506
  18. ALBUMIN HUMAN [Concomitant]
     Active Substance: ALBUMIN HUMAN
     Indication: Hypoalbuminaemia
     Dates: start: 20190430, end: 20190503
  19. ALBUMIN HUMAN [Concomitant]
     Active Substance: ALBUMIN HUMAN
     Dates: start: 20190531, end: 20190601
  20. METHYLPREDNISOLONE [Concomitant]
     Active Substance: METHYLPREDNISOLONE
     Route: 048
     Dates: start: 20190505, end: 20190507
  21. METHYLPREDNISOLONE [Concomitant]
     Active Substance: METHYLPREDNISOLONE
     Route: 042
     Dates: start: 20190531, end: 20190531
  22. TORSEMIDE [Concomitant]
     Active Substance: TORSEMIDE
     Dates: start: 20190531, end: 20190531
  23. DYPHYLLINE [Concomitant]
     Active Substance: DYPHYLLINE
     Dates: start: 20190531, end: 20190531

REACTIONS (1)
  - Cardiac failure [Fatal]

NARRATIVE: CASE EVENT DATE: 20190601
